FAERS Safety Report 6380202-8 (Version None)
Quarter: 2009Q3

REPORT INFORMATION
  Report Type: 
  Country: None (occurrence: None)
  Receive Date: 20090923
  Receipt Date: 20090910
  Transmission Date: 20100115
  Serious: Yes (Hospitalization)
  Sender: FDA-Public Use
  Company Number: 1000008968

PATIENT
  Age: 93 Year
  Sex: Female

DRUGS (9)
  1. ESCITALOPRAM [Suspect]
     Dosage: 5 MG (5 MG, 1 IN 1 D), ORAL
     Route: 048
     Dates: start: 20081111, end: 20081120
  2. PERINDOPRIL(TABLETS) [Suspect]
     Dosage: 8 MG (8 MG, 1 IN 1 D), ORAL
     Route: 048
     Dates: start: 20070612, end: 20081114
  3. SINTROM [Suspect]
     Dosage: 1 MG, AS REQUIRED, ORAL
     Route: 048
  4. PLAVIX [Concomitant]
  5. LEVOTHYROXINE SODIUM [Concomitant]
  6. DILTIAZEM [Concomitant]
  7. TOREM (TABLETS) [Concomitant]
  8. RASILEZ (TABLETS) [Concomitant]
  9. NEURONTIN [Concomitant]

REACTIONS (3)
  - HYPERKALAEMIA [None]
  - HYPONATRAEMIA [None]
  - INTERNATIONAL NORMALISED RATIO INCREASED [None]
